FAERS Safety Report 6449549-0 (Version None)
Quarter: 2009Q4

REPORT INFORMATION
  Report Type: 
  Country: None (occurrence: None)
  Receive Date: 20091120
  Receipt Date: 20081217
  Transmission Date: 20100525
  Serious: Yes (Other)
  Sender: FDA-Public Use
  Company Number: US-AMGEN-QUU323038

PATIENT
  Sex: Male

DRUGS (3)
  1. ENBREL [Suspect]
     Indication: PSORIASIS
     Route: 058
     Dates: start: 20040701, end: 20081001
  2. BUPROPION HCL [Concomitant]
  3. DEPAKOTE [Concomitant]

REACTIONS (1)
  - MALIGNANT MELANOMA [None]
